FAERS Safety Report 14055064 (Version 2)
Quarter: 2017Q4

REPORT INFORMATION
  Report Type: Spontaneous
  Country: US (occurrence: US)
  Receive Date: 20171006
  Receipt Date: 20171227
  Transmission Date: 20180321
  Serious: Yes (Hospitalization, Disabling, Other)
  Sender: FDA-Public Use
  Company Number: US-ELI_LILLY_AND_COMPANY-US201710000184

PATIENT
  Age: 48 Year
  Sex: Male
  Weight: 97.51 kg

DRUGS (1)
  1. AXIRON [Suspect]
     Active Substance: TESTOSTERONE
     Indication: ANDROGEN REPLACEMENT THERAPY
     Dosage: UNK UNK, UNKNOWN
     Route: 065
     Dates: start: 201310, end: 201501

REACTIONS (5)
  - Cerebellar infarction [Unknown]
  - Fall [Unknown]
  - Embolic stroke [Unknown]
  - Transient ischaemic attack [Unknown]
  - Back injury [Unknown]

NARRATIVE: CASE EVENT DATE: 20140929
